FAERS Safety Report 20357044 (Version 11)
Quarter: 2024Q3

REPORT INFORMATION
  Report Type: Report from Study
  Country: CA (occurrence: CA)
  Receive Date: 20220120
  Receipt Date: 20240829
  Transmission Date: 20241016
  Serious: Yes (Other)
  Sender: ROCHE
  Company Number: CA-ROCHE-2733063

PATIENT
  Sex: Female

DRUGS (3)
  1. OCREVUS [Suspect]
     Active Substance: OCRELIZUMAB
     Indication: Relapsing-remitting multiple sclerosis
     Dosage: 300 MG AT DAY 0 AND 14, THEN 600 MG EVERY 6 MONTH
     Route: 042
     Dates: start: 20191218
  2. IRBESARTAN [Concomitant]
     Active Substance: IRBESARTAN
  3. CITALOPRAM [Concomitant]
     Active Substance: CITALOPRAM\CITALOPRAM HYDROBROMIDE

REACTIONS (14)
  - Hypoaesthesia [Not Recovered/Not Resolved]
  - Nephrolithiasis [Recovered/Resolved]
  - Pain in extremity [Recovered/Resolved]
  - Cough [Not Recovered/Not Resolved]
  - Musculoskeletal stiffness [Not Recovered/Not Resolved]
  - Nasal congestion [Not Recovered/Not Resolved]
  - Nasopharyngitis [Recovered/Resolved]
  - Brain fog [Not Recovered/Not Resolved]
  - SARS-CoV-2 test positive [Recovered/Resolved]
  - Haemorrhoids [Recovered/Resolved]
  - Tooth infection [Recovered/Resolved]
  - Cyst [Recovered/Resolved]
  - Limb discomfort [Unknown]
  - Feeling hot [Unknown]
